FAERS Safety Report 21255836 (Version 1)
Quarter: 2022Q3

REPORT INFORMATION
  Report Type: Spontaneous
  Country: None (occurrence: CN)
  Receive Date: 20220825
  Receipt Date: 20220825
  Transmission Date: 20221026
  Serious: Yes (Other)
  Sender: FDA-Public Use
  Company Number: CN-B.Braun Medical Inc.-2132235

PATIENT
  Age: 57 Year
  Sex: Male

DRUGS (2)
  1. RINGERS SOLUTION [Suspect]
     Active Substance: CALCIUM CHLORIDE\POTASSIUM CHLORIDE\SODIUM CHLORIDE
  2. SODIUM CHLORIDE [Suspect]
     Active Substance: SODIUM CHLORIDE

REACTIONS (3)
  - Hypokalaemia [Recovered/Resolved]
  - Ventricular extrasystoles [Recovered/Resolved]
  - Haematocrit decreased [Recovered/Resolved]
